FAERS Safety Report 4503589-7 (Version None)
Quarter: 2004Q4

REPORT INFORMATION
  Report Type: 
  Country: None (occurrence: None)
  Receive Date: 20041112
  Receipt Date: 20041028
  Transmission Date: 20050328
  Serious: Yes (Other)
  Sender: FDA-Public Use
  Company Number: 2004-0007669

PATIENT

DRUGS (2)
  1. HEPSERA (ADEFOVIR DIPIFOXIL) [Suspect]
     Indication: HEPATITIS B VIRUS
  2. LAMIVUDINE (LAMIVUDINE) [Suspect]
     Indication: HEPATITIS B VIRUS

REACTIONS (3)
  - ALANINE AMINOTRANSFERASE INCREASED [None]
  - DRUG RESISTANCE [None]
  - HBV DNA INCREASED [None]
